FAERS Safety Report 8583839-0 (Version None)
Quarter: 2012Q3

REPORT INFORMATION
  Report Type: 
  Country: None (occurrence: None)
  Receive Date: 20120810
  Receipt Date: 20120801
  Transmission Date: 20120928
  Serious: Yes (Other)
  Sender: FDA-Public Use
  Company Number: GB-009507513-1208GBR001845

PATIENT

DRUGS (1)
  1. NEXPLANON [Suspect]
     Dosage: UNK
     Route: 059
     Dates: start: 20110601, end: 20120501

REACTIONS (3)
  - PALPITATIONS [None]
  - DYSPNOEA [None]
  - PANIC ATTACK [None]
